FAERS Safety Report 7553166-9 (Version None)
Quarter: 2011Q2

REPORT INFORMATION
  Report Type: 
  Country: None (occurrence: None)
  Receive Date: 20110617
  Receipt Date: 20110608
  Transmission Date: 20111010
  Serious: Yes (Death, Hospitalization, Other)
  Sender: FDA-Public Use
  Company Number: FR-AMGEN-FRASP2011002467

PATIENT
  Age: 62 Year
  Sex: Male
  Weight: 70 kg

DRUGS (2)
  1. PREDNISONE [Concomitant]
     Dosage: UNK
     Dates: start: 20041111, end: 20100411
  2. ENBREL [Suspect]
     Indication: RHEUMATOID ARTHRITIS
     Dosage: 1 DF, WEEKLY
     Dates: start: 20080101, end: 20090310

REACTIONS (5)
  - PERIPHERAL EMBOLISM [None]
  - LUNG INFILTRATION [None]
  - CEREBRAL ARTERY EMBOLISM [None]
  - SMALL CELL LUNG CANCER STAGE UNSPECIFIED [None]
  - LUNG INFECTION [None]
